FAERS Safety Report 13267310 (Version 1)
Quarter: 2017Q1

REPORT INFORMATION
  Report Type: Spontaneous
  Country: US (occurrence: US)
  Receive Date: 20170223
  Receipt Date: 20170223
  Transmission Date: 20170428
  Serious: No
  Sender: FDA-Public Use
  Company Number: None

PATIENT
  Age: 54 Year
  Sex: Male

DRUGS (2)
  1. CAPECITABINE 150MG ACCORD [Suspect]
     Active Substance: CAPECITABINE
     Indication: COLON CANCER
     Dosage: 2XA DAY 14 DAYS ON 7 DAYS OFF
     Route: 048
     Dates: start: 20160927, end: 20170213
  2. CAPECITABINE 500MG ACCORD [Suspect]
     Active Substance: CAPECITABINE
     Indication: COLON CANCER
     Dosage: 2XA DAY 14 DAYS ON 7 DAYS OFF
     Route: 048
     Dates: start: 20170213

REACTIONS (1)
  - Fatigue [None]

NARRATIVE: CASE EVENT DATE: 20170213
